FAERS Safety Report 10208498 (Version 2)
Quarter: 2014Q4

REPORT INFORMATION
  Report Type: Spontaneous
  Country: FR (occurrence: FR)
  Receive Date: 20140530
  Receipt Date: 20141105
  Transmission Date: 20150528
  Serious: Yes (Hospitalization)
  Sender: FDA-Public Use
  Company Number: FR-BRISTOL-MYERS SQUIBB COMPANY-20829206

PATIENT
  Age: 66 Year
  Sex: Male

DRUGS (16)
  1. FRESUBIN [Concomitant]
     Active Substance: AMINO ACIDS\DEXTROSE\ELECTROLYTES NOS\SOYBEAN OIL\VITAMINS
  2. ZOPHREN [Concomitant]
     Active Substance: ONDANSETRON
  3. 5-FLUOROURACIL [Suspect]
     Active Substance: FLUOROURACIL
     Route: 042
     Dates: start: 20140416, end: 20140417
  4. SIMVASTATIN. [Concomitant]
     Active Substance: SIMVASTATIN
  5. SINGULAIR [Concomitant]
     Active Substance: MONTELUKAST SODIUM
  6. QUESTRAN [Concomitant]
     Active Substance: CHOLESTYRAMINE
  7. ESOMEPRAZOLE [Concomitant]
     Active Substance: ESOMEPRAZOLE
  8. BECLOJET [Concomitant]
     Active Substance: BECLOMETHASONE DIPROPIONATE
  9. FOLINIC ACID [Concomitant]
     Active Substance: LEUCOVORIN
  10. BISOPROLOL [Concomitant]
     Active Substance: BISOPROLOL
  11. XYZAL [Concomitant]
     Active Substance: LEVOCETIRIZINE DIHYDROCHLORIDE
  12. VALSARTAN. [Concomitant]
     Active Substance: VALSARTAN
  13. ERBITUX [Suspect]
     Active Substance: CETUXIMAB
     Route: 042
     Dates: start: 20140416, end: 20140416
  14. IRINOTECAN [Suspect]
     Active Substance: IRINOTECAN
     Route: 042
     Dates: start: 20140416, end: 20140416
  15. ZELITREX [Concomitant]
     Active Substance: VALACYCLOVIR HYDROCHLORIDE
  16. PERMIXON [Concomitant]
     Active Substance: SAW PALMETTO

REACTIONS (3)
  - Myocardial ischaemia [Recovered/Resolved]
  - Ejection fraction decreased [Recovered/Resolved with Sequelae]
  - Electrocardiogram QT prolonged [Recovered/Resolved]

NARRATIVE: CASE EVENT DATE: 20140418
